FAERS Safety Report 9250864 (Version 1)
Quarter: 2013Q1

REPORT INFORMATION
  Report Type: Spontaneous
  Country: US (occurrence: None)
  Receive Date: 20130305
  Receipt Date: 20130305
  Transmission Date: 20140127
  Serious: Yes (Hospitalization)
  Sender: FDA-Public Use
  Company Number: 163-21880-12100669

PATIENT
  Age: 76 Year
  Sex: Male

DRUGS (13)
  1. REVLIMID [Suspect]
     Indication: PLASMA CELL MYELOMA
     Dosage: 1 IN 1 D
     Route: 048
     Dates: start: 20120718, end: 20120730
  2. ALBUTERO NEBULIZER (SALBUTAMOL) (UNKNOWN) [Concomitant]
  3. BROVANA NEBULIZER (ARFORMOTEROL TARTRATE) [Concomitant]
  4. BUPROPION HCL (BUPROPION HYDROCHLORIDE) [Concomitant]
  5. DIGOXIN (DIGOXIN) [Concomitant]
  6. FE + (IRON) (UNKNOWN) [Concomitant]
  7. F;AGU; ),ETRPMODAZP;E_ [Concomitant]
  8. FUROSEMIDE (FUROSEMIDE) [Concomitant]
  9. GLYBURIDE (GLIBENCLAMIDE) [Concomitant]
  10. LEVOTHYROXINE (LEVOTHYROXINE) [Concomitant]
  11. LIPITOR (ATORVSTATIN) [Concomitant]
  12. METOPROLOL (METOPROLOL) [Concomitant]
  13. TIKOSYN (DOFETILIDE) (UNKNOWN) [Concomitant]

REACTIONS (3)
  - Neutropenia [None]
  - Herpes zoster [None]
  - Plasma cell myeloma [None]
